FAERS Safety Report 17929621 (Version 1)
Quarter: 2020Q2

REPORT INFORMATION
  Report Type: Spontaneous
  Country: US (occurrence: US)
  Receive Date: 20200623
  Receipt Date: 20200623
  Transmission Date: 20200714
  Serious: No
  Sender: FDA-Public Use
  Company Number: None

PATIENT
  Age: 26 Year
  Sex: Female

DRUGS (2)
  1. VRAYLAR [Concomitant]
     Active Substance: CARIPRAZINE
     Dates: start: 20200420, end: 20200608
  2. VRAYLAR [Suspect]
     Active Substance: CARIPRAZINE
     Indication: BIPOLAR DISORDER
     Dates: start: 20200420, end: 20200608

REACTIONS (1)
  - Pruritus [None]

NARRATIVE: CASE EVENT DATE: 20200608
